FAERS Safety Report 7518963-4 (Version None)
Quarter: 2011Q2

REPORT INFORMATION
  Report Type: 
  Country: None (occurrence: None)
  Receive Date: 20110602
  Receipt Date: 20110520
  Transmission Date: 20111010
  Serious: Yes (Hospitalization)
  Sender: FDA-Public Use
  Company Number: RU-CELGENEUS-CA046-11-0208

PATIENT
  Sex: Female
  Weight: 78 kg

DRUGS (7)
  1. KETOPROFEN [Concomitant]
     Indication: PAIN
     Route: 030
     Dates: start: 20100412
  2. PANCREATIN [Concomitant]
     Indication: PANCREATITIS
     Route: 048
     Dates: start: 20100412
  3. SPIRONOLACTONE [Concomitant]
     Route: 048
     Dates: start: 20100827
  4. ABRAXANE [Suspect]
     Indication: PANCREATIC CARCINOMA
     Route: 065
     Dates: start: 20100429, end: 20110310
  5. ABRAXANE [Suspect]
     Route: 065
     Dates: start: 20110317
  6. OMEPRAZOLE [Concomitant]
     Indication: PAIN
     Route: 048
     Dates: start: 20100203
  7. GEMCITABINE [Suspect]
     Indication: PANCREATIC CARCINOMA
     Dates: start: 20100429

REACTIONS (1)
  - GASTROINTESTINAL HAEMORRHAGE [None]
